FAERS Safety Report 5575667-5 (Version None)
Quarter: 2007Q4

REPORT INFORMATION
  Report Type: 
  Country: None (occurrence: None)
  Receive Date: 20071221
  Receipt Date: 20071210
  Transmission Date: 20080405
  Serious: Yes (Hospitalization, Other)
  Sender: FDA-Public Use
  Company Number: MEDI-0006207

PATIENT
  Age: 10 Month
  Sex: Male
  Weight: 8 kg

DRUGS (6)
  1. SYNAGIS [Suspect]
     Indication: ANTIVIRAL PROPHYLAXIS
     Dosage: 110 MG INTRAMUSCULAR
     Route: 030
     Dates: start: 20061129, end: 20061129
  2. FRUSEDMIDE [Concomitant]
  3. CAPTOPRIL [Concomitant]
  4. LOPERAMIDE [Concomitant]
  5. CODEINE SUL TAB [Concomitant]
  6. ALFACALCIDOL (ALFACALCIDOL) [Concomitant]

REACTIONS (12)
  - C-REACTIVE PROTEIN INCREASED [None]
  - CONTUSION [None]
  - DRUG ERUPTION [None]
  - INTERNATIONAL NORMALISED RATIO INCREASED [None]
  - NEUTROPENIA [None]
  - PETECHIAE [None]
  - PYREXIA [None]
  - RASH [None]
  - RASH PAPULAR [None]
  - SEPSIS [None]
  - SUPRAVENTRICULAR EXTRASYSTOLES [None]
  - WHITE BLOOD CELL COUNT DECREASED [None]
